FAERS Safety Report 8104928-0 (Version None)
Quarter: 2012Q1

REPORT INFORMATION
  Report Type: 
  Country: None (occurrence: None)
  Receive Date: 20120201
  Receipt Date: 20120130
  Transmission Date: 20120608
  Serious: Yes (Hospitalization)
  Sender: FDA-Public Use
  Company Number: US-GLAXOSMITHKLINE-A0963839A

PATIENT
  Age: 17 Year
  Sex: Male

DRUGS (2)
  1. TRACLEER [Concomitant]
  2. FLOLAN [Suspect]
     Indication: PRODUCT USED FOR UNKNOWN INDICATION
     Dosage: 308NGKM SEE DOSAGE TEXT
     Route: 042
     Dates: start: 19991112

REACTIONS (1)
  - STAPHYLOCOCCAL INFECTION [None]
